FAERS Safety Report 7521512-8 (Version None)
Quarter: 2011Q2

REPORT INFORMATION
  Report Type: 
  Country: None (occurrence: None)
  Receive Date: 20110603
  Receipt Date: 20110527
  Transmission Date: 20111010
  Serious: Yes (Life-Threatening)
  Sender: FDA-Public Use
  Company Number: GB-BAYER-2011-046598

PATIENT
  Age: 70 Year
  Sex: Male

DRUGS (3)
  1. ORAL ANTIDIABETICS [Concomitant]
     Indication: DIABETES MELLITUS
  2. SORAFENIB (RAF KINASE INHIBITOR) [Suspect]
     Indication: RENAL CELL CARCINOMA
     Dosage: 400 MG, BID
     Dates: start: 20110224
  3. ASPIRIN [Concomitant]

REACTIONS (5)
  - HEMIPARESIS [None]
  - CEREBROVASCULAR ACCIDENT [None]
  - DYSPHAGIA [None]
  - SPEECH DISORDER [None]
  - DIARRHOEA [None]
